FAERS Safety Report 11087629 (Version 1)
Quarter: 2015Q2

REPORT INFORMATION
  Report Type: Spontaneous
  Country: US (occurrence: US)
  Receive Date: 20150504
  Receipt Date: 20150504
  Transmission Date: 20150821
  Serious: Yes (Hospitalization)
  Sender: FDA-Public Use
  Company Number: US-SA-2015SA056284

PATIENT
  Sex: Male

DRUGS (1)
  1. AFREZZA [Suspect]
     Active Substance: INSULIN HUMAN
     Indication: TYPE 2 DIABETES MELLITUS
     Dosage: DOSE: 24 UNITS WITH BREAKFAST, 12 UNITS LUNCH,12 UNITS DINNER
     Route: 065

REACTIONS (2)
  - Sinus congestion [Unknown]
  - Cough [Unknown]
